FAERS Safety Report 10145907 (Version 1)
Quarter: 2014Q2

REPORT INFORMATION
  Report Type: Spontaneous
  Country: US (occurrence: None)
  Receive Date: 20140430
  Receipt Date: 20140430
  Transmission Date: 20141212
  Serious: No
  Sender: FDA-Public Use
  Company Number: None

PATIENT
  Age: 86 Year
  Sex: Male

DRUGS (7)
  1. REVLIMID [Suspect]
     Dosage: MML
     Dates: start: 20120810
  2. HCTZ [Concomitant]
  3. ATORVASTATIN [Concomitant]
  4. TAMSULOSIN [Concomitant]
  5. FINASTERIDE [Concomitant]
  6. WARFARIN [Concomitant]
  7. DEXAMETHASONE [Concomitant]

REACTIONS (2)
  - Abdominal pain upper [None]
  - Diarrhoea [None]
